FAERS Safety Report 4882735-X (Version None)
Quarter: 2006Q1

REPORT INFORMATION
  Report Type: 
  Country: None (occurrence: None)
  Receive Date: 20060117
  Receipt Date: 20050419
  Transmission Date: 20060701
  Serious: Yes (Hospitalization, Disabling)
  Sender: FDA-Public Use
  Company Number: US-MERCK-0504USA03824

PATIENT
  Age: 66 Year
  Sex: Female
  Weight: 95 kg

DRUGS (2)
  1. VIOXX [Suspect]
     Indication: ARTHRITIS
     Route: 048
     Dates: start: 19990101, end: 20040801
  2. ASPIRIN [Concomitant]
     Route: 065

REACTIONS (5)
  - BACK DISORDER [None]
  - CARDIOVASCULAR DISORDER [None]
  - CHEST PAIN [None]
  - DYSPNOEA [None]
  - THROMBOSIS [None]
